FAERS Safety Report 24868882 (Version 2)
Quarter: 2025Q2

REPORT INFORMATION
  Report Type: Report from Study
  Country: US (occurrence: US)
  Receive Date: 20250121
  Receipt Date: 20250408
  Transmission Date: 20250716
  Serious: Yes (Other)
  Sender: ABBVIE
  Company Number: US-ABBVIE-6089039

PATIENT
  Sex: Male

DRUGS (1)
  1. RINVOQ [Suspect]
     Active Substance: UPADACITINIB
     Indication: Psoriatic arthropathy
     Dosage: STRENGTH: 15 MG
     Route: 048
     Dates: start: 20241006, end: 20250112

REACTIONS (10)
  - Skin disorder [Unknown]
  - Abdominal discomfort [Unknown]
  - Pyrexia [Unknown]
  - Intestinal obstruction [Unknown]
  - White blood cell count increased [Unknown]
  - Red blood cell count decreased [Unknown]
  - Platelet count increased [Unknown]
  - Arthralgia [Recovering/Resolving]
  - Blood disorder [Recovering/Resolving]
  - Illness [Unknown]
